FAERS Safety Report 5278842-2 (Version None)
Quarter: 2007Q1

REPORT INFORMATION
  Report Type: 
  Country: None (occurrence: None)
  Receive Date: 20061208
  Receipt Date: 20060323
  Transmission Date: 20070707
  Serious: No
  Sender: FDA-Public Use
  Company Number: 2005UW16342

PATIENT
  Sex: Male
  Weight: 136.0791 kg

DRUGS (8)
  1. CRESTOR [Suspect]
     Indication: HYPERCHOLESTEROLAEMIA
     Dosage: 10 MG PO
     Route: 048
  2. CRESTOR [Suspect]
     Indication: HYPERCHOLESTEROLAEMIA
     Dosage: 10 MG PO
     Route: 048
  3. BENICAR HCT [Concomitant]
  4. ASTOS [Concomitant]
  5. AMARYL [Concomitant]
  6. LOPRESSOR [Concomitant]
  7. LEVITRA [Concomitant]
  8. ALLEGRA [Concomitant]

REACTIONS (1)
  - MUSCULOSKELETAL STIFFNESS [None]
